FAERS Safety Report 8936499 (Version 1)
Quarter: 2012Q4

REPORT INFORMATION
  Report Type: 
  Country: HR (occurrence: HR)
  Receive Date: 20121130
  Receipt Date: 20121130
  Transmission Date: 20130627
  Serious: Yes (Other)
  Sender: FDA-Public Use
  Company Number: HR-JNJFOC-20121112548

PATIENT
  Age: 53 Year
  Sex: Female

DRUGS (5)
  1. SIMPONI [Suspect]
     Indication: RHEUMATOID ARTHRITIS
     Route: 058
     Dates: start: 201206
  2. ROACTEMRA [Suspect]
     Indication: RHEUMATOID ARTHRITIS
     Route: 042
     Dates: start: 201105, end: 201204
  3. CONTROLOC [Concomitant]
     Route: 048
  4. DEPROZEL [Concomitant]
     Route: 048
  5. MEDROL [Concomitant]
     Route: 048

REACTIONS (2)
  - Photosensitivity reaction [Unknown]
  - Pruritus allergic [Unknown]
